FAERS Safety Report 8951583 (Version 3)
Quarter: 2014Q3

REPORT INFORMATION
  Report Type: Report from Study
  Country: BE (occurrence: BE)
  Receive Date: 20121204
  Receipt Date: 20140722
  Transmission Date: 20150326
  Serious: Yes (Hospitalization)
  Sender: FDA-Public Use
  Company Number: BE-ROCHE-1162595

PATIENT
  Sex: Male

DRUGS (8)
  1. RANIBIZUMAB [Suspect]
     Active Substance: RANIBIZUMAB
     Route: 050
     Dates: start: 20120726, end: 20120726
  2. CEFOPERAZONE, SULBACTAM [Concomitant]
     Route: 065
     Dates: start: 20120828
  3. KINZALKOMB [Concomitant]
     Active Substance: HYDROCHLOROTHIAZIDE\TELMISARTAN
     Route: 065
     Dates: start: 200711, end: 201208
  4. RANIBIZUMAB [Suspect]
     Active Substance: RANIBIZUMAB
     Indication: PRODUCT USED FOR UNKNOWN INDICATION
     Route: 050
     Dates: start: 20100705
  5. ZOLADEX [Concomitant]
     Active Substance: GOSERELIN ACETATE
     Route: 065
     Dates: start: 20110325, end: 201208
  6. RANIBIZUMAB [Suspect]
     Active Substance: RANIBIZUMAB
     Route: 050
     Dates: start: 20121112
  7. AMBIEN [Concomitant]
     Active Substance: ZOLPIDEM TARTRATE
     Route: 065
     Dates: start: 200711, end: 201208
  8. ZOMETA [Concomitant]
     Active Substance: ZOLEDRONIC ACID
     Route: 065
     Dates: start: 20120218, end: 201208

REACTIONS (5)
  - Aortic stenosis [Recovering/Resolving]
  - Troponin T increased [Unknown]
  - Red blood cell count decreased [Unknown]
  - Platelet count decreased [Unknown]
  - Cardiac failure [Recovering/Resolving]
